FAERS Safety Report 19450989 (Version 3)
Quarter: 2021Q3

REPORT INFORMATION
  Report Type: Report from Study
  Country: DE (occurrence: DE)
  Receive Date: 20210623
  Receipt Date: 20210712
  Transmission Date: 20211014
  Serious: Yes (Hospitalization)
  Sender: FDA-Public Use
  Company Number: DE-BEH-2021133135

PATIENT
  Age: 82 Year
  Sex: Female
  Weight: 54 kg

DRUGS (6)
  1. PRIVIGEN [Suspect]
     Active Substance: HUMAN IMMUNOGLOBULIN G
     Indication: SECONDARY IMMUNODEFICIENCY
     Dosage: 10 GRAM, TOT
     Route: 042
     Dates: start: 20200605, end: 20200605
  2. PRIVIGEN [Suspect]
     Active Substance: HUMAN IMMUNOGLOBULIN G
     Indication: PLASMACYTOMA
     Dosage: 10 GRAM, TOT
     Route: 042
     Dates: start: 20200319, end: 20200319
  3. METAMIZOLE [Concomitant]
     Active Substance: METAMIZOLE
  4. PRIVIGEN [Suspect]
     Active Substance: HUMAN IMMUNOGLOBULIN G
     Indication: INFECTION
     Dosage: 10 GRAM, TOT
     Route: 042
     Dates: start: 20200723, end: 20200723
  5. FRESUBIN [CARBOHYDRATES NOS;FATTY ACIDS NOS;MINERALS NOS;PROTEINS NOS; [Concomitant]
     Active Substance: CARBOHYDRATES\FATTY ACIDS\MINERALS\PROTEIN\VITAMINS
  6. PRIVIGEN [Suspect]
     Active Substance: HUMAN IMMUNOGLOBULIN G
     Indication: IMMUNOGLOBULINS DECREASED
     Dosage: 20 GRAM, TOT
     Route: 042
     Dates: start: 20200918, end: 20200918

REACTIONS (5)
  - Tremor [Recovered/Resolved]
  - Dyspnoea [Recovered/Resolved]
  - Blood pressure decreased [Recovered/Resolved]
  - Chills [Recovered/Resolved]
  - Pyrexia [Recovered/Resolved]

NARRATIVE: CASE EVENT DATE: 20200918
